FAERS Safety Report 5284731-X (Version None)
Quarter: 2007Q1

REPORT INFORMATION
  Report Type: 
  Country: None (occurrence: None)
  Receive Date: 20061229
  Receipt Date: 20060227
  Transmission Date: 20070707
  Serious: Yes (Other)
  Sender: FDA-Public Use
  Company Number: PHEH2006US01923

PATIENT
  Sex: Female
  Weight: 122.4 kg

DRUGS (2)
  1. CLOZARIL [Suspect]
     Indication: SCHIZOAFFECTIVE DISORDER
     Dosage: 250 MG, QD, ORAL
     Route: 048
     Dates: start: 19940101, end: 20050101
  2. CLOZAPINE [Suspect]
     Indication: SCHIZOAFFECTIVE DISORDER
     Dosage: 250 MG QD, ORAL
     Route: 048
     Dates: start: 20050101

REACTIONS (6)
  - ENURESIS [None]
  - FATIGUE [None]
  - PALPITATIONS [None]
  - POLLAKIURIA [None]
  - STOMACH DISCOMFORT [None]
  - WEIGHT INCREASED [None]
